FAERS Safety Report 5369622-8 (Version None)
Quarter: 2007Q2

REPORT INFORMATION
  Report Type: 
  Country: None (occurrence: None)
  Receive Date: 20070625
  Receipt Date: 20070620
  Transmission Date: 20071010
  Serious: Yes (Disabling)
  Sender: FDA-Public Use
  Company Number: ES-BRISTOL-MYERS SQUIBB COMPANY-13815188

PATIENT
  Age: 45 Year
  Sex: Male

DRUGS (3)
  1. SUSTIVA [Suspect]
     Dates: start: 20040109
  2. DIDANOSINE [Concomitant]
     Dates: start: 20040109
  3. LAMIVUDINE [Concomitant]
     Dates: start: 20040109

REACTIONS (1)
  - MACULOPATHY [None]
